FAERS Safety Report 4760082-4 (Version None)
Quarter: 2005Q3

REPORT INFORMATION
  Report Type: 
  Country: None (occurrence: None)
  Receive Date: 20050902
  Receipt Date: 20050207
  Transmission Date: 20060218
  Serious: No
  Sender: FDA-Public Use
  Company Number: US-GLAXOSMITHKLINE-A0544226A

PATIENT
  Age: 79 Year
  Sex: Male

DRUGS (3)
  1. REQUIP [Suspect]
     Indication: PARKINSON'S DISEASE
     Dosage: 3MG THREE TIMES PER WEEK
     Route: 048
  2. CHILDREN'S ASPIRIN [Concomitant]
  3. MIRALAX [Concomitant]
     Route: 065

REACTIONS (1)
  - OEDEMA [None]
